FAERS Safety Report 7305155-7 (Version None)
Quarter: 2011Q1

REPORT INFORMATION
  Report Type: 
  Country: None (occurrence: None)
  Receive Date: 20110222
  Receipt Date: 20110215
  Transmission Date: 20110831
  Serious: Yes (Other)
  Sender: FDA-Public Use
  Company Number: CO-PFIZER INC-CO-WYE-H15676410

PATIENT
  Sex: Female

DRUGS (2)
  1. PREMARIN [Suspect]
     Indication: HORMONE REPLACEMENT THERAPY
     Dosage: TABLET STRENGTH WAS 0.3MG BUT DAILY DOSAGE TAKEN UNKNOWN
     Route: 048
     Dates: start: 19900101, end: 20100526
  2. PREMARIN [Suspect]
     Dosage: TABLET STRENGTH WAS 0.3MG BUT DAILY DOSAGE TAKEN UNKNOWN
     Route: 048
     Dates: start: 20100609

REACTIONS (8)
  - FIBROCYSTIC BREAST DISEASE [None]
  - DRUG DEPENDENCE [None]
  - VEIN DISORDER [None]
  - MALAISE [None]
  - BREAST FIBROMA [None]
  - FIBROMA [None]
  - HYPERHIDROSIS [None]
  - FEELING HOT [None]
